FAERS Safety Report 8523195-7 (Version None)
Quarter: 2012Q3

REPORT INFORMATION
  Report Type: 
  Country: None (occurrence: None)
  Receive Date: 20120709
  Receipt Date: 20120626
  Transmission Date: 20120928
  Serious: Yes (Other)
  Sender: FDA-Public Use
  Company Number: 2012060144

PATIENT
  Age: 83 Year
  Sex: Female

DRUGS (1)
  1. LEVSINEX [Suspect]
     Indication: EAR DISORDER

REACTIONS (1)
  - DEAFNESS UNILATERAL [None]
